FAERS Safety Report 8481080-3 (Version None)
Quarter: 2012Q3

REPORT INFORMATION
  Report Type: 
  Country: None (occurrence: None)
  Receive Date: 20120702
  Receipt Date: 20120628
  Transmission Date: 20120928
  Serious: Yes (Other)
  Sender: FDA-Public Use
  Company Number: PHHY2012JP030260

PATIENT
  Sex: Female
  Weight: 1.3 kg

DRUGS (3)
  1. DEXAMETHASONE [Concomitant]
     Dosage: UNK UKN, UNK
     Route: 064
  2. NEORAL [Suspect]
     Route: 064
  3. GANCICLOVIR [Concomitant]

REACTIONS (4)
  - FOETAL GROWTH RESTRICTION [None]
  - PREMATURE BABY [None]
  - FOETAL EXPOSURE DURING PREGNANCY [None]
  - LOW BIRTH WEIGHT BABY [None]
